FAERS Safety Report 6904965-5 (Version None)
Quarter: 2010Q3

REPORT INFORMATION
  Report Type: 
  Country: None (occurrence: None)
  Receive Date: 20100804
  Receipt Date: 20090814
  Transmission Date: 20110219
  Serious: No
  Sender: FDA-Public Use
  Company Number: US-PFIZER INC-2009232150

PATIENT
  Sex: Female
  Weight: 73.016 kg

DRUGS (6)
  1. LYRICA [Suspect]
     Indication: FIBROMYALGIA
     Dosage: 100 MG, 2X/DAY
     Dates: start: 20090201, end: 20090101
  2. WELLBUTRIN [Concomitant]
     Dosage: UNK
  3. SYNTHROID [Concomitant]
     Dosage: UNK
  4. VALSARTAN [Concomitant]
     Dosage: UNK
  5. LIPITOR [Concomitant]
     Dates: end: 20090101
  6. NEXIUM [Concomitant]
     Dosage: UNK

REACTIONS (4)
  - AMNESIA [None]
  - DIZZINESS [None]
  - DYSPHEMIA [None]
  - TREMOR [None]
